FAERS Safety Report 4286814-X (Version None)
Quarter: 2004Q1

REPORT INFORMATION
  Report Type: 
  Country: None (occurrence: None)
  Receive Date: 20040206
  Receipt Date: 20040109
  Transmission Date: 20041129
  Serious: Yes (Other)
  Sender: FDA-Public Use
  Company Number: JP-ROCHE-355653

PATIENT
  Age: 87 Year
  Sex: Female

DRUGS (4)
  1. ROCEPHIN [Suspect]
     Indication: PERITONITIS
     Dosage: ROUTE REPORTED AS DRIP
     Route: 050
     Dates: start: 20031201, end: 20031207
  2. ROCEPHIN [Suspect]
     Dosage: ROUTE REPORTED AS DRIP.
     Route: 050
     Dates: start: 20031208, end: 20031219
  3. MAGNESIUM HYDROXIDE TAB [Concomitant]
     Dosage: FORMULATION REPORTED AS GRA.
     Route: 048
     Dates: start: 20031204, end: 20040107
  4. LAC-B [Concomitant]
     Dosage: FORMULATION REPORTED AS POW.
     Route: 048
     Dates: start: 20031211, end: 20040107

REACTIONS (1)
  - HEPATIC FUNCTION ABNORMAL [None]
